FAERS Safety Report 23550116 (Version 1)
Quarter: 2024Q1

REPORT INFORMATION
  Report Type: Spontaneous
  Country: GB (occurrence: GB)
  Receive Date: 20240221
  Receipt Date: 20240221
  Transmission Date: 20240410
  Serious: Yes (Other)
  Sender: FDA-Public Use
  Company Number: GB-MYLANLABS-2023M1134579

PATIENT
  Age: 35 Year
  Sex: Male
  Weight: 112.5 kg

DRUGS (11)
  1. CLOZARIL [Suspect]
     Active Substance: CLOZAPINE
     Indication: Schizoaffective disorder
     Dosage: 125 MILLIGRAM (1PM DAILY) AND 425 MILLIGRAM (9PM DAILY), QD
     Route: 048
     Dates: start: 20110715
  2. RISPERIDONE [Concomitant]
     Active Substance: RISPERIDONE
     Dosage: 3 MILLIGRAM, BID
     Route: 048
     Dates: start: 201612
  3. CLOBAZAM [Concomitant]
     Active Substance: CLOBAZAM
     Dosage: 10 MILLIGRAM, DAILY AT 6PM (QD)
     Route: 048
     Dates: start: 2016
  4. FLUDROCORTISONE ACETATE [Concomitant]
     Active Substance: FLUDROCORTISONE ACETATE
     Dosage: 100 MICROGRAM, DAILY AT 9 AM (QD)
     Route: 048
     Dates: start: 202303
  5. SIMVASTATIN [Concomitant]
     Active Substance: SIMVASTATIN
     Dosage: 10 MILLIGRAM, DAILY AT NIGHT (QD)
     Route: 048
     Dates: start: 2015
  6. ARIPIPRAZOLE [Concomitant]
     Active Substance: ARIPIPRAZOLE
     Dosage: 20 MILLIGRAM, QD
     Route: 048
     Dates: start: 2017
  7. VALPROATE SODIUM [Concomitant]
     Active Substance: VALPROATE SODIUM
     Dosage: 800MG (AT 9AM AND 1PM) AND 600 MILLIGRAM, DAILY AT NIGHT 6PM
     Route: 048
     Dates: start: 2014
  8. PIRENZEPINE [Concomitant]
     Active Substance: PIRENZEPINE
     Dosage: 50 MILLIGRAM, BID
     Route: 048
     Dates: start: 2014
  9. VITAMINS [Concomitant]
     Active Substance: VITAMINS
     Indication: Vitamin supplementation
     Dosage: UNK, AM (MORNING)
     Route: 048
     Dates: start: 2015
  10. SODIUM FLUORIDE [Concomitant]
     Active Substance: SODIUM FLUORIDE\SODIUM MONOFLUOROPHOSPHATE
     Indication: Dental disorder prophylaxis
     Dosage: UNK, BID
     Route: 065
     Dates: start: 202303
  11. POLYETHYLENE GLYCOLS [Concomitant]
     Active Substance: POLYETHYLENE GLYCOLS
     Indication: Constipation
     Dosage: ONE SACHET (PRN, BEEN USING ONCE A WEEK)
     Route: 048
     Dates: start: 202303

REACTIONS (2)
  - Thrombocytopenia [Recovered/Resolved]
  - Off label use [Unknown]

NARRATIVE: CASE EVENT DATE: 20110715
